FAERS Safety Report 9089737 (Version 3)
Quarter: 2013Q1

REPORT INFORMATION
  Report Type: Report from Study
  Country: US (occurrence: US)
  Receive Date: 20130201
  Receipt Date: 20130329
  Transmission Date: 20140127
  Serious: Yes (Hospitalization, Other)
  Sender: FDA-Public Use
  Company Number: US-JNJFOC-20130113798

PATIENT
  Age: 55 None
  Sex: Male
  Weight: 97.07 kg

DRUGS (6)
  1. SIMPONI [Suspect]
     Indication: RHEUMATOID ARTHRITIS
     Route: 058
     Dates: start: 2010
  2. PREDNISONE [Concomitant]
     Indication: ARTHRITIS
     Dates: start: 2012
  3. PREDNISONE [Concomitant]
     Indication: ARTHRITIS
     Dates: start: 2010, end: 2012
  4. DICLOFENAC [Concomitant]
     Indication: PAIN
     Route: 048
     Dates: start: 2009
  5. DICLOFENAC [Concomitant]
     Indication: ARTHRITIS
     Route: 048
     Dates: start: 2009
  6. METFORMIN [Concomitant]
     Indication: DIABETES MELLITUS

REACTIONS (7)
  - Diabetes mellitus [Not Recovered/Not Resolved]
  - Finger amputation [Not Recovered/Not Resolved]
  - Hepatitis C [Not Recovered/Not Resolved]
  - Abscess limb [Not Recovered/Not Resolved]
  - Headache [Not Recovered/Not Resolved]
  - Device malfunction [Not Recovered/Not Resolved]
  - Drug dose omission [Not Recovered/Not Resolved]
